FAERS Safety Report 7089776-5 (Version None)
Quarter: 2010Q4

REPORT INFORMATION
  Report Type: 
  Country: None (occurrence: None)
  Receive Date: 20101108
  Receipt Date: 20101101
  Transmission Date: 20110411
  Serious: Yes (Hospitalization)
  Sender: FDA-Public Use
  Company Number: DE-PFIZER INC-2010118286

PATIENT
  Age: 72 Year
  Sex: Female

DRUGS (13)
  1. LYRICA [Suspect]
     Indication: PAIN IN EXTREMITY
     Dosage: 75 MG
     Route: 048
     Dates: start: 20100712, end: 20100712
  2. LYRICA [Suspect]
     Indication: RESTLESS LEGS SYNDROME
  3. HYDROCHLOROTHIAZIDE [Concomitant]
  4. BISOPROLOL [Concomitant]
  5. LISINOPRIL [Concomitant]
  6. ASPIRIN [Concomitant]
     Dosage: 100 UNK, UNK
  7. EMBOLEX [Concomitant]
     Dosage: 0.3 (PRE-FILLED SYRINGE), 1X/DAY (IN THE EVENING)
     Dates: start: 20100711
  8. SIFROL [Concomitant]
  9. LEVODOPA [Concomitant]
  10. SERTRALINE [Concomitant]
  11. ACETYLCYSTEINE [Concomitant]
     Dosage: 600 UNK, UNK
     Dates: start: 20100711
  12. ISOSORBIDE DINITRATE [Concomitant]
  13. SIMVASTATIN [Concomitant]

REACTIONS (10)
  - BLOOD BLISTER [None]
  - BLOOD UREA INCREASED [None]
  - BLOOD URIC ACID INCREASED [None]
  - ERYTHEMA MULTIFORME [None]
  - EXCORIATION [None]
  - HAEMOGLOBIN DECREASED [None]
  - LOW DENSITY LIPOPROTEIN INCREASED [None]
  - RASH [None]
  - URTICARIA [None]
  - WHITE BLOOD CELL COUNT DECREASED [None]
